FAERS Safety Report 19452656 (Version 1)
Quarter: 2021Q2

REPORT INFORMATION
  Report Type: Spontaneous
  Country: US (occurrence: US)
  Receive Date: 20210623
  Receipt Date: 20210623
  Transmission Date: 20210717
  Serious: Yes (Life-Threatening, Hospitalization, Other)
  Sender: FDA-Public Use
  Company Number: US-TILLOMED LABORATORIES LTD.-2021-EPL-001991

PATIENT
  Age: 73 Year
  Sex: Female

DRUGS (4)
  1. ZOLEDRONIC ACID [Suspect]
     Active Substance: ZOLEDRONIC ACID
     Indication: OSTEOPOROSIS
     Dosage: 5 MILLIGRAM, 1 TOTAL
     Dates: start: 20201123, end: 20201123
  2. ADALIMUMAB [Interacting]
     Active Substance: ADALIMUMAB
     Indication: SJOGREN^S SYNDROME
  3. METHOTREXATE. [Interacting]
     Active Substance: METHOTREXATE
     Indication: SJOGREN^S SYNDROME
  4. SULFASALAZINE. [Interacting]
     Active Substance: SULFASALAZINE
     Indication: SJOGREN^S SYNDROME

REACTIONS (12)
  - Toxicity to various agents [Recovered/Resolved]
  - Nephropathy toxic [Recovered/Resolved]
  - Leukocytosis [Recovered/Resolved]
  - Renal tubular necrosis [Recovered/Resolved]
  - Blood pressure decreased [Recovered/Resolved]
  - Metabolic acidosis [Recovered/Resolved]
  - Anaemia [Recovered/Resolved]
  - Acute kidney injury [Recovered/Resolved]
  - Off label use [Unknown]
  - Drug interaction [Recovered/Resolved]
  - Hypocalcaemia [Recovered/Resolved]
  - Hyponatraemia [Recovered/Resolved]

NARRATIVE: CASE EVENT DATE: 2020
